FAERS Safety Report 24533451 (Version 5)
Quarter: 2025Q1

REPORT INFORMATION
  Report Type: Spontaneous
  Country: US (occurrence: US)
  Receive Date: 20241022
  Receipt Date: 20250228
  Transmission Date: 20250409
  Serious: No
  Sender: PFIZER
  Company Number: US-PFIZER INC-202400279639

PATIENT
  Age: 41 Year
  Sex: Male
  Weight: 99.79 kg

DRUGS (1)
  1. SOMAVERT [Suspect]
     Active Substance: PEGVISOMANT
     Dosage: 7 DAYS/WEEK

REACTIONS (1)
  - Product preparation issue [Unknown]
